FAERS Safety Report 6535613-4 (Version None)
Quarter: 2010Q1

REPORT INFORMATION
  Report Type: 
  Country: None (occurrence: None)
  Receive Date: 20100113
  Receipt Date: 20100105
  Transmission Date: 20100710
  Serious: Yes (Hospitalization, Other)
  Sender: FDA-Public Use
  Company Number: PHEH2006US09222

PATIENT
  Sex: Male

DRUGS (15)
  1. ZOMETA [Suspect]
     Indication: METASTASES TO BONE
     Dosage: ONCE PER MONTH
     Dates: start: 20041001, end: 20051101
  2. ZOCOR [Concomitant]
  3. AVAPRO [Concomitant]
  4. ASPIRIN [Concomitant]
     Dosage: 81 MG, UNK
  5. DETROL [Concomitant]
     Dosage: 4 MG, UNK
  6. TRILISATE [Concomitant]
  7. DEXAMETHASONE [Concomitant]
     Dosage: UNK, BID
  8. ZOLOFT [Concomitant]
     Dosage: 150 MG, UNK
  9. LOSARTAN [Concomitant]
     Dosage: 25 MG, UNK
  10. MULTI-VITAMINS [Concomitant]
  11. CALCIUM [Concomitant]
  12. LOVAZA [Concomitant]
  13. CASODEX [Concomitant]
  14. PERCOCET [Concomitant]
  15. RESTORIL [Concomitant]

REACTIONS (22)
  - ANXIETY [None]
  - ARRHYTHMIA [None]
  - BONE DEBRIDEMENT [None]
  - BONE DENSITY DECREASED [None]
  - BONE DISORDER [None]
  - BONE PAIN [None]
  - CORONARY ARTERIAL STENT INSERTION [None]
  - FALL [None]
  - INFECTION [None]
  - INJURY [None]
  - MASTICATION DISORDER [None]
  - ORAL DISORDER [None]
  - ORAL PAIN [None]
  - OSTEONECROSIS [None]
  - PAIN [None]
  - RENAL CYST [None]
  - STOMATITIS [None]
  - SUBDURAL HAEMATOMA [None]
  - SWELLING [None]
  - SYNCOPE [None]
  - TOOTH LOSS [None]
  - TOOTH REPAIR [None]
